FAERS Safety Report 9298722 (Version 3)
Quarter: 2013Q3

REPORT INFORMATION
  Report Type: Spontaneous
  Country: FR (occurrence: None)
  Receive Date: 20130515
  Receipt Date: 20130723
  Transmission Date: 20140515
  Serious: Yes (Hospitalization)
  Sender: FDA-Public Use
  Company Number: FR-011613

PATIENT
  Age: 27 Year
  Sex: Female

DRUGS (3)
  1. DECAPETYL [Suspect]
     Indication: IN VITRO FERTILISATION
     Route: 030
     Dates: start: 20130321, end: 20130321
  2. MENOPUR [Suspect]
     Indication: IN VITRO FERTILISATION
     Dosage: 2 VIALS PER DAY SUBCUTANEOUS
     Route: 058
     Dates: start: 20130403, end: 20130407
  3. FOLIC ACID [Concomitant]

REACTIONS (10)
  - Laryngeal discomfort [None]
  - Respiratory disorder [None]
  - Discomfort [None]
  - Asphyxia [None]
  - Dysphagia [None]
  - Palatal oedema [None]
  - Eyelid oedema [None]
  - Sensation of pressure [None]
  - Anxiety [None]
  - White blood cell count increased [None]
